FAERS Safety Report 17860119 (Version 1)
Quarter: 2020Q2

REPORT INFORMATION
  Report Type: Spontaneous
  Country: US (occurrence: US)
  Receive Date: 20200604
  Receipt Date: 20200604
  Transmission Date: 20200714
  Serious: Yes (Hospitalization)
  Sender: FDA-Public Use
  Company Number: None

PATIENT
  Age: 67 Year
  Sex: Male
  Weight: 87.2 kg

DRUGS (2)
  1. VANCOMYCIN [Suspect]
     Active Substance: VANCOMYCIN
     Indication: OSTEOMYELITIS
     Dates: start: 20200501, end: 20200525
  2. VANCOMYCIN [Suspect]
     Active Substance: VANCOMYCIN
     Dates: start: 20200501, end: 20200525

REACTIONS (2)
  - Acute kidney injury [None]
  - Neutropenia [None]

NARRATIVE: CASE EVENT DATE: 20200525
